FAERS Safety Report 7333670-9 (Version None)
Quarter: 2011Q1

REPORT INFORMATION
  Report Type: 
  Country: None (occurrence: None)
  Receive Date: 20110306
  Receipt Date: 20110223
  Transmission Date: 20110831
  Serious: Yes (Hospitalization, Other)
  Sender: FDA-Public Use
  Company Number: US-ELI_LILLY_AND_COMPANY-US201009003345

PATIENT
  Sex: Female

DRUGS (13)
  1. FORTEO [Suspect]
     Indication: OSTEOPOROSIS
     Dosage: 20 UG, DAILY (1/D)
     Route: 065
  2. POTASSIUM [Concomitant]
  3. VITAMIN D [Concomitant]
     Dosage: UNK, 2/M
  4. COUMADIN [Concomitant]
  5. VITAMIN B-12 [Concomitant]
     Dosage: UNK, 3/W
  6. FORTEO [Suspect]
     Dosage: 20 UG, DAILY (1/D)
  7. PREVACID [Concomitant]
  8. PREDNISONE [Concomitant]
  9. COREG [Concomitant]
  10. FUROSEMIDE [Concomitant]
  11. ACEON [Concomitant]
  12. DIGOXIN [Concomitant]
     Dosage: UNK, 3/D
  13. HYDROCODONE BITARTRATE [Concomitant]
     Dosage: UNK, AS NEEDED

REACTIONS (3)
  - FALL [None]
  - NAUSEA [None]
  - HIP FRACTURE [None]
